FAERS Safety Report 8440132-4 (Version None)
Quarter: 2012Q2

REPORT INFORMATION
  Report Type: 
  Country: None (occurrence: None)
  Receive Date: 20120615
  Receipt Date: 20120606
  Transmission Date: 20120825
  Serious: Yes (Death)
  Sender: FDA-Public Use
  Company Number: CA-ACTELION-A-US2012-67023

PATIENT

DRUGS (5)
  1. PREDNISONE TAB [Concomitant]
  2. REVATIO [Concomitant]
  3. LASIX [Concomitant]
  4. TRACLEER [Suspect]
     Indication: PULMONARY ARTERIAL HYPERTENSION
     Dosage: UNK
     Route: 048
     Dates: start: 20111201, end: 20120416
  5. SPIRONOLACTONE [Concomitant]

REACTIONS (1)
  - RIGHT VENTRICULAR FAILURE [None]
